FAERS Safety Report 7265649-X (Version None)
Quarter: 2011Q1

REPORT INFORMATION
  Report Type: 
  Country: None (occurrence: None)
  Receive Date: 20110131
  Receipt Date: 20110121
  Transmission Date: 20110831
  Serious: Yes (Other)
  Sender: FDA-Public Use
  Company Number: US-BAYER-2011-007882

PATIENT
  Sex: Female

DRUGS (1)
  1. MIRENA [Suspect]
     Indication: CONTRACEPTION
     Dosage: UNK
     Dates: start: 20110118, end: 20110118

REACTIONS (4)
  - SYNCOPE [None]
  - ANXIETY [None]
  - BLOOD PRESSURE INCREASED [None]
  - ABDOMINAL PAIN [None]
